FAERS Safety Report 19926173 (Version 9)
Quarter: 2024Q3

REPORT INFORMATION
  Report Type: Spontaneous
  Country: US (occurrence: US)
  Receive Date: 20211006
  Receipt Date: 20240812
  Transmission Date: 20241016
  Serious: No
  Sender: PFIZER
  Company Number: US-PFIZER INC-202101173583

PATIENT
  Age: 83 Year
  Sex: Male
  Weight: 95.254 kg

DRUGS (4)
  1. BRAFTOVI [Suspect]
     Active Substance: ENCORAFENIB
     Indication: Metastatic malignant melanoma
     Dosage: 225 MG, DAILY (TAKE 3 CAPSULES DAILY)
     Route: 048
     Dates: start: 2021
  2. MEKTOVI [Suspect]
     Active Substance: BINIMETINIB
     Indication: Metastatic malignant melanoma
     Dosage: 30 MG, 2X/DAY (TAKE 30 MG 2 TIMES A DAY)
     Route: 048
  3. MEKTOVI [Suspect]
     Active Substance: BINIMETINIB
     Dosage: 15 MG, 2X/DAY (15 MG 2 TIMES A DAY)
     Route: 048
     Dates: start: 2021
  4. CELEBREX [Concomitant]
     Active Substance: CELECOXIB
     Dosage: 100 MG, 1X/DAY (TAKE 1 CAPSULE)
     Route: 048

REACTIONS (4)
  - Nasopharyngitis [Unknown]
  - Musculoskeletal stiffness [Unknown]
  - Headache [Unknown]
  - Malaise [Unknown]

NARRATIVE: CASE EVENT DATE: 20240501
